FAERS Safety Report 6441859-6 (Version None)
Quarter: 2009Q4

REPORT INFORMATION
  Report Type: 
  Country: None (occurrence: None)
  Receive Date: 20091116
  Receipt Date: 20091111
  Transmission Date: 20100525
  Serious: No
  Sender: FDA-Public Use
  Company Number: US-B.I. PHARMACEUTICALS,INC./RIDGEFIELD-2009-BP-13116BP

PATIENT
  Sex: Female

DRUGS (1)
  1. SPIRIVA [Suspect]
     Indication: ASTHMA EXERCISE INDUCED
     Dosage: 18 MCG
     Route: 055
     Dates: start: 20090401, end: 20090401

REACTIONS (1)
  - UNEVALUABLE EVENT [None]
